FAERS Safety Report 6887200-6 (Version None)
Quarter: 2010Q3

REPORT INFORMATION
  Report Type: 
  Country: None (occurrence: None)
  Receive Date: 20100730
  Receipt Date: 20100721
  Transmission Date: 20110219
  Serious: Yes (Other)
  Sender: FDA-Public Use
  Company Number: CA-JNJFOC-20100705678

PATIENT
  Sex: Male
  Weight: 110 kg

DRUGS (3)
  1. REMICADE [Suspect]
     Indication: CROHN'S DISEASE
     Dosage: INFUSION INTERVAL DECREASED
     Route: 042
  2. REMICADE [Suspect]
     Dosage: X 52
     Route: 042
  3. IMURAN [Concomitant]
     Dosage: DOSE WAS INCREASED FROM 1/2 TABLET TO 1 TABLET.

REACTIONS (2)
  - CROHN'S DISEASE [None]
  - FISTULA [None]
